FAERS Safety Report 8238297-2 (Version None)
Quarter: 2012Q1

REPORT INFORMATION
  Report Type: 
  Country: None (occurrence: None)
  Receive Date: 20120326
  Receipt Date: 20120315
  Transmission Date: 20120608
  Serious: Yes (Other)
  Sender: FDA-Public Use
  Company Number: HRA-CDB20120073

PATIENT
  Age: 23 Year
  Sex: Female

DRUGS (3)
  1. ELLAONE 30 MG TABLETTE (ELLAONE) (ULIPRISTAL ACETATE) [Suspect]
     Indication: CONTRACEPTION
     Dosage: (30 MG),ORAL
     Route: 048
     Dates: start: 20111115
  2. LAMOTRIGIN (LAMOTRIGIN) [Concomitant]
  3. L-THYROX (LEVOTHYROXINE) [Concomitant]

REACTIONS (4)
  - MATERNAL EXPOSURE DURING PREGNANCY [None]
  - WRONG TECHNIQUE IN DRUG USAGE PROCESS [None]
  - ABORTION INDUCED [None]
  - TREATMENT FAILURE [None]
